FAERS Safety Report 12223816 (Version 1)
Quarter: 2016Q1

REPORT INFORMATION
  Report Type: Spontaneous
  Country: FR (occurrence: FR)
  Receive Date: 20160330
  Receipt Date: 20160330
  Transmission Date: 20160526
  Serious: Yes (Hospitalization)
  Sender: FDA-Public Use
  Company Number: FR-TEVA-645648ISR

PATIENT
  Age: 69 Year
  Sex: Female
  Weight: 46 kg

DRUGS (24)
  1. VINCRISTINE HOSPIRA [Suspect]
     Active Substance: VINCRISTINE
     Dosage: DAY 1 OF THE SECOND COURSE R-CHOP
     Route: 041
     Dates: start: 20150102
  2. CRESTOR [Concomitant]
     Active Substance: ROSUVASTATIN CALCIUM
     Dosage: 5 MILLIGRAM DAILY; IN THE EVENING
  3. BACTRIM [Concomitant]
     Active Substance: SULFAMETHOXAZOLE\TRIMETHOPRIM
     Dosage: ON TUESDAY, WEDNESDAY AND FRIDAY
     Route: 048
  4. LEDERFOLINE [Concomitant]
     Active Substance: LEUCOVORIN CALCIUM
     Dosage: 1 DOSAGE FORMS DAILY; IN THE EVENING
  5. MABTHERA [Suspect]
     Active Substance: RITUXIMAB
     Dosage: DAY 1 OF THE SECOND COURSE R-CHOP
     Dates: start: 20150102
  6. AMLOR 10 MG [Concomitant]
     Dosage: 10 MILLIGRAM DAILY;
  7. LOVENOX [Concomitant]
     Active Substance: ENOXAPARIN SODIUM
     Dosage: .4 ML DAILY;
  8. TRANSIPEG 5.9 G [Concomitant]
     Indication: CONSTIPATION
  9. LANTUS [Concomitant]
     Active Substance: INSULIN GLARGINE
     Dosage: 4 IU (INTERNATIONAL UNIT) DAILY; IN THE MORNING
     Route: 058
  10. ENDOXAN [Suspect]
     Active Substance: CYCLOPHOSPHAMIDE
     Dosage: DAY 1 OF THE SECOND COURSE R-CHOP
     Dates: start: 20150102
  11. METHYLPREDNISOLONE MYLAN [Concomitant]
     Active Substance: METHYLPREDNISOLONE
     Dosage: DAY 1 OF THE SECOND COURSE OF R-CHOP
     Route: 041
     Dates: start: 20150102, end: 20150102
  12. ADVAGRAF [Concomitant]
     Active Substance: TACROLIMUS
  13. LASILIX 40 MG [Concomitant]
     Active Substance: FUROSEMIDE
     Dosage: 40 MILLIGRAM DAILY;
  14. ASPEGIC 100 MG [Concomitant]
     Dosage: 1 DOSAGE FORMS DAILY; AT MIDDAY
  15. PERFALGAN [Concomitant]
     Active Substance: ACETAMINOPHEN
     Dosage: DAY 1 OF THE SECOND COURSE OF R-CHOP
     Route: 041
     Dates: start: 20150102, end: 20150102
  16. INEXIUM [Concomitant]
     Active Substance: ESOMEPRAZOLE
     Dosage: 40 MILLIGRAM DAILY; FORM: GASTRO-RESISTANT TABLET - IN THE EVENING
  17. POLARAMINE [Concomitant]
     Active Substance: DEXCHLORPHENIRAMINE MALEATE
     Dosage: SLOW IV DAY 1 TO DAY 5 OF THE SECOND COURSE OF R-CHOP
     Route: 042
     Dates: start: 20150102, end: 20150106
  18. BARACLUDE [Concomitant]
     Active Substance: ENTECAVIR
     Dosage: .5 MILLIGRAM DAILY;
  19. DOXORUBICINE TEVA [Suspect]
     Active Substance: DOXORUBICIN
     Dosage: DAY 1 OF THE SECOND COURSE R-CHOP
     Route: 041
     Dates: start: 20150102
  20. CORTANCYL [Concomitant]
     Active Substance: PREDNISONE
     Dosage: 20 MILLIGRAM DAILY;
     Dates: start: 20150102, end: 20150106
  21. ONDANSETRON ACCORD [Concomitant]
     Active Substance: ONDANSETRON
     Dosage: DAY 1 OF THE SECOND COURSE OF R-CHOP
     Dates: start: 20150102, end: 20150102
  22. SULFARLEM 12.5 MG [Concomitant]
     Dosage: 37.5 MILLIGRAM DAILY;
  23. ZELITREX 500 MG [Concomitant]
     Active Substance: VALACYCLOVIR HYDROCHLORIDE
     Dosage: 500 MILLIGRAM DAILY; IN THE MORNING
  24. STILNOX [Concomitant]
     Active Substance: ZOLPIDEM TARTRATE
     Dosage: 1 DOSAGE FORMS DAILY; AT NIGHT

REACTIONS (3)
  - Febrile neutropenia [Recovered/Resolved]
  - Lymphopenia [Recovered/Resolved]
  - Septic shock [Recovered/Resolved]

NARRATIVE: CASE EVENT DATE: 201501
